FAERS Safety Report 8509411 (Version 3)
Quarter: 2013Q4

REPORT INFORMATION
  Report Type: Report from Study
  Country: US (occurrence: US)
  Receive Date: 20120413
  Receipt Date: 20131202
  Transmission Date: 20140711
  Serious: Yes (Other)
  Sender: FDA-Public Use
  Company Number: US-BIOGENIDEC-2012BI011838

PATIENT
  Age: 35 Year
  Sex: Female
  Weight: 79 kg

DRUGS (5)
  1. TYSABRI [Suspect]
     Indication: MULTIPLE SCLEROSIS
     Route: 042
     Dates: start: 20080926, end: 20120606
  2. BUSPIRONE [Concomitant]
     Indication: DEPRESSION
     Route: 048
  3. CYMBALTA [Concomitant]
     Indication: DEPRESSION
     Route: 048
  4. CYMBALTA [Concomitant]
     Indication: HEADACHE
     Route: 048
  5. FLEXERIL [Concomitant]
     Indication: BACK PAIN

REACTIONS (1)
  - Vulvar dysplasia [Recovered/Resolved]
